FAERS Safety Report 9308025 (Version 1)
Quarter: 2013Q2

REPORT INFORMATION
  Report Type: Spontaneous
  Country: US (occurrence: US)
  Receive Date: 20130524
  Receipt Date: 20130524
  Transmission Date: 20140414
  Serious: No
  Sender: FDA-Public Use
  Company Number: US-GLAXOSMITHKLINE-A1012492A

PATIENT
  Age: 61 Year
  Sex: Female

DRUGS (13)
  1. BACTROBAN [Suspect]
     Indication: RHINITIS
     Route: 045
     Dates: start: 20130215, end: 20130215
  2. MUPIROCIN [Suspect]
     Indication: NASAL DISORDER
     Route: 045
     Dates: start: 20100723, end: 20100728
  3. PREMARIN [Concomitant]
  4. MEDROXYPROGESTERON ACETATE [Concomitant]
  5. ACIPHEX [Concomitant]
  6. BENICAR [Concomitant]
  7. NORCO [Concomitant]
  8. CLONAZEPAM [Concomitant]
  9. NORTRIPTYLINE [Concomitant]
  10. TIZANIDINE [Concomitant]
  11. CARAFATE [Concomitant]
  12. VITAMIN [Concomitant]
  13. TUMS [Concomitant]

REACTIONS (10)
  - Nausea [Recovered/Resolved]
  - Pyrexia [Recovered/Resolved]
  - Dizziness [Recovered/Resolved]
  - Abdominal pain upper [Recovered/Resolved]
  - Malaise [Recovered/Resolved]
  - Headache [Recovered/Resolved]
  - Tremor [Recovered/Resolved]
  - Dry mouth [Recovered/Resolved]
  - Abdominal discomfort [Recovered/Resolved]
  - Product quality issue [Unknown]
